FAERS Safety Report 9320634 (Version 1)
Quarter: 2013Q2

REPORT INFORMATION
  Report Type: Report from Study
  Country: US (occurrence: US)
  Receive Date: 20130531
  Receipt Date: 20130531
  Transmission Date: 20140414
  Serious: Yes (Hospitalization, Other)
  Sender: FDA-Public Use
  Company Number: US-ROCHE-1221618

PATIENT
  Sex: Male
  Weight: 99.88 kg

DRUGS (7)
  1. INVIRASE [Suspect]
     Indication: HIV INFECTION
     Route: 048
     Dates: start: 20070327, end: 20070510
  2. INVIRASE [Suspect]
     Route: 048
     Dates: start: 20070511
  3. INVIRASE [Suspect]
     Route: 065
     Dates: start: 1995
  4. TRICOR [Concomitant]
     Indication: LIPIDS INCREASED
     Route: 048
     Dates: start: 20010121
  5. SYNTHROID [Concomitant]
     Indication: HYPOTHYROIDISM
     Route: 048
     Dates: start: 20010829
  6. NORVIR [Concomitant]
     Indication: HIV INFECTION
  7. EPIVIR [Concomitant]
     Indication: HIV INFECTION

REACTIONS (6)
  - Blindness [Unknown]
  - Headache [Unknown]
  - Swelling [Unknown]
  - Inflammation [Unknown]
  - Uveitis [Unknown]
  - Retinal detachment [Unknown]
